FAERS Safety Report 8445363-5 (Version None)
Quarter: 2012Q2

REPORT INFORMATION
  Report Type: 
  Country: None (occurrence: None)
  Receive Date: 20120323
  Receipt Date: 20111118
  Transmission Date: 20120825
  Serious: Yes (Other)
  Sender: FDA-Public Use
  Company Number: 163-21880-11103458

PATIENT
  Age: 87 Year
  Sex: Female

DRUGS (2)
  1. REVLIMID [Suspect]
     Indication: MULTIPLE MYELOMA
     Dosage: 10 MG, PO
     Route: 048
     Dates: start: 20110407
  2. EYE DROPS (TETRYZOLINE HYDROCHLORIDE) [Concomitant]

REACTIONS (1)
  - CATARACT [None]
